FAERS Safety Report 15357246 (Version 2)
Quarter: 2018Q4

REPORT INFORMATION
  Report Type: Spontaneous
  Country: FR (occurrence: FR)
  Receive Date: 20180906
  Receipt Date: 20181109
  Transmission Date: 20190204
  Serious: Yes (Hospitalization, Other)
  Sender: FDA-Public Use
  Company Number: FR-INDIVIOR LIMITED-INDV-113726-2018

PATIENT
  Age: 58 Year
  Sex: Male

DRUGS (1)
  1. SUBUTEX [Suspect]
     Active Substance: BUPRENORPHINE HYDROCHLORIDE
     Indication: PRODUCT USED FOR UNKNOWN INDICATION
     Dosage: UNK
     Route: 040
     Dates: start: 2013

REACTIONS (7)
  - Intentional product use issue [Recovered/Resolved]
  - Intentional product misuse [Recovering/Resolving]
  - Brachial artery entrapment syndrome [Recovering/Resolving]
  - Cardio-respiratory arrest [Recovered/Resolved]
  - Acute coronary syndrome [Recovering/Resolving]
  - Cerebrovascular accident [Recovering/Resolving]
  - Endocarditis bacterial [Recovering/Resolving]

NARRATIVE: CASE EVENT DATE: 2013
